FAERS Safety Report 17231661 (Version 2)
Quarter: 2020Q1

REPORT INFORMATION
  Report Type: Report from Study
  Country: US (occurrence: US)
  Receive Date: 20200103
  Receipt Date: 20200204
  Transmission Date: 20200409
  Serious: Yes (Hospitalization)
  Sender: FDA-Public Use
  Company Number: US-VERTEX PHARMACEUTICALS-2019-013815

PATIENT
  Age: 55 Year
  Sex: Female

DRUGS (12)
  1. VITAMIN D3 [Concomitant]
     Active Substance: CHOLECALCIFEROL
  2. TRAMADOL. [Concomitant]
     Active Substance: TRAMADOL
  3. KALYDECO [Suspect]
     Active Substance: IVACAFTOR
     Indication: CYSTIC FIBROSIS
     Dosage: 150 MG, BID
     Route: 048
     Dates: start: 20150110
  4. TOPAMAX [Concomitant]
     Active Substance: TOPIRAMATE
  5. LORATADINE. [Concomitant]
     Active Substance: LORATADINE
  6. ZOLOFT [Concomitant]
     Active Substance: SERTRALINE HYDROCHLORIDE
  7. CAYSTON [Concomitant]
     Active Substance: AZTREONAM
  8. CALCIUM CITRATE + D3 [Concomitant]
  9. PANCREAZE [AMYLASE;LIPASE;PROTEASE] [Concomitant]
  10. URSODIOL. [Concomitant]
     Active Substance: URSODIOL
  11. MUCINEX [Concomitant]
     Active Substance: GUAIFENESIN
  12. SODIUM CHLORIDE. [Concomitant]
     Active Substance: SODIUM CHLORIDE
     Dosage: UNK, 7%

REACTIONS (7)
  - Thrombosis [Unknown]
  - Nephrolithiasis [Unknown]
  - Peripheral swelling [Unknown]
  - Pneumonia [Unknown]
  - Ulcer [Unknown]
  - Abdominal pain [Unknown]
  - Hypoaesthesia [Unknown]

NARRATIVE: CASE EVENT DATE: 201911
